FAERS Safety Report 7734061-9 (Version None)
Quarter: 2011Q3

REPORT INFORMATION
  Report Type: 
  Country: None (occurrence: None)
  Receive Date: 20110906
  Receipt Date: 20110906
  Transmission Date: 20111222
  Serious: Yes (Hospitalization)
  Sender: FDA-Public Use
  Company Number: None

PATIENT
  Age: 86 Year
  Sex: Male

DRUGS (1)
  1. VANCOMYCIN [Suspect]
     Indication: POSTOPERATIVE WOUND INFECTION
     Dosage: 1000 MG BID IV
     Route: 042
     Dates: start: 20110820, end: 20110823

REACTIONS (5)
  - VOMITING [None]
  - NAUSEA [None]
  - RENAL FAILURE ACUTE [None]
  - NEPHRITIS [None]
  - SEDATION [None]
